FAERS Safety Report 23302210 (Version 5)
Quarter: 2024Q2

REPORT INFORMATION
  Report Type: Spontaneous
  Country: US (occurrence: US)
  Receive Date: 20231215
  Receipt Date: 20240530
  Transmission Date: 20240715
  Serious: Yes (Hospitalization, Other)
  Sender: FDA-Public Use
  Company Number: US-PFIZER INC-202300443038

PATIENT
  Age: 64 Year
  Sex: Male
  Weight: 46.259 kg

DRUGS (5)
  1. IBRANCE [Suspect]
     Active Substance: PALBOCICLIB
     Indication: Breast cancer male
     Dosage: 125 MG, CYCLIC (21 DAYS ON/7 DAYS OFF)
  2. IBRANCE [Suspect]
     Active Substance: PALBOCICLIB
     Dosage: 100 MG, CYCLIC (DAILY, 7 DAYS ON, 7 DAYS OFF, REPEATING)
     Dates: start: 20231204
  3. IBRANCE [Suspect]
     Active Substance: PALBOCICLIB
     Dosage: TAKE 1 TABLET ONCE DAILY FOR 7 DAYS, THEN TAKE 7 DAYS OFF AND REPEAT
     Dates: start: 20231208, end: 20240103
  4. IBRANCE [Suspect]
     Active Substance: PALBOCICLIB
     Dosage: TAKE 1 TABLET ONCE DAILY FOR 7 DAYS, THEN TAKE 7 DAYS OFF AND REPEAT
     Dates: end: 202401
  5. TAMOXIFEN [Concomitant]
     Active Substance: TAMOXIFEN
     Dosage: 10 MG

REACTIONS (7)
  - Oral surgery [Unknown]
  - Haemorrhoids [Unknown]
  - Fatigue [Recovering/Resolving]
  - Lung disorder [Recovered/Resolved]
  - Off label use [Unknown]
  - Product use issue [Unknown]
  - Dizziness [Recovering/Resolving]

NARRATIVE: CASE EVENT DATE: 20230101
